FAERS Safety Report 21414048 (Version 1)
Quarter: 2022Q4

REPORT INFORMATION
  Report Type: Spontaneous
  Country: US (occurrence: US)
  Receive Date: 20221006
  Receipt Date: 20221006
  Transmission Date: 20230113
  Serious: No
  Sender: FDA-Public Use
  Company Number: US-ALLERGAN-2225127US

PATIENT
  Sex: Male

DRUGS (1)
  1. QULIPTA [Suspect]
     Active Substance: ATOGEPANT
     Indication: Product used for unknown indication
     Dosage: UNK UNK, QD

REACTIONS (6)
  - Hypersensitivity [Unknown]
  - Oropharyngeal pain [Unknown]
  - Dysphagia [Unknown]
  - Myalgia [Unknown]
  - Sensitive skin [Unknown]
  - Bone pain [Unknown]
